FAERS Safety Report 15097941 (Version 2)
Quarter: 2018Q3

REPORT INFORMATION
  Report Type: Spontaneous
  Country: JP (occurrence: JP)
  Receive Date: 20180702
  Receipt Date: 20180706
  Transmission Date: 20181010
  Serious: Yes (Other)
  Sender: FDA-Public Use
  Company Number: JP-PFIZER INC-2018262541

PATIENT
  Age: 44 Year
  Sex: Male

DRUGS (2)
  1. METHYLPREDNISOLONE. [Suspect]
     Active Substance: METHYLPREDNISOLONE
     Indication: MULTIPLE SCLEROSIS
     Dosage: UNK, PULSE THERAPY
     Route: 042
  2. AVONEX [Suspect]
     Active Substance: INTERFERON BETA-1A
     Indication: MULTIPLE SCLEROSIS
     Dosage: 7.5 UG, SINGLE

REACTIONS (5)
  - Hepatotoxicity [Recovering/Resolving]
  - Hepatic haemorrhage [Recovering/Resolving]
  - Hepatic necrosis [Recovering/Resolving]
  - Autoimmune hepatitis [Recovering/Resolving]
  - Liver injury [Recovering/Resolving]
